FAERS Safety Report 4277926-5 (Version None)
Quarter: 2004Q1

REPORT INFORMATION
  Report Type: 
  Country: None (occurrence: None)
  Receive Date: 20040122
  Receipt Date: 20040122
  Transmission Date: 20041129
  Serious: Yes (Hospitalization, Other)
  Sender: FDA-Public Use
  Company Number: None

PATIENT
  Sex: Female
  Weight: 43.0917 kg

DRUGS (2)
  1. CISPLATIN [Suspect]
     Indication: CARCINOMA
     Dosage: CISPLAT 156 MG IV
     Route: 042
     Dates: start: 20040112
  2. RADIATION THERAPY [Concomitant]

REACTIONS (2)
  - NAUSEA [None]
  - VOMITING [None]
